FAERS Safety Report 7522137-0 (Version None)
Quarter: 2011Q2

REPORT INFORMATION
  Report Type: 
  Country: None (occurrence: None)
  Receive Date: 20110603
  Receipt Date: 20110531
  Transmission Date: 20111010
  Serious: Yes (Other)
  Sender: FDA-Public Use
  Company Number: TN-PFIZER INC-2011118125

PATIENT
  Age: 89 Year
  Sex: Male

DRUGS (7)
  1. IRBESARTAN AND HYDROCHLOROTHIAZIDE [Concomitant]
     Dosage: UNK
  2. FERROUS SULFATE TAB [Concomitant]
     Dosage: UNK
  3. LYRICA [Suspect]
     Indication: POST-TRAUMATIC PAIN
     Dosage: 150 MG, 3X/DAY
  4. VITAMIN B-12 [Concomitant]
     Dosage: UNK
  5. LACTULOSE [Concomitant]
     Dosage: UNK
  6. CORDARONE [Concomitant]
     Dosage: UNK
  7. LYRICA [Suspect]
     Indication: JOINT DISLOCATION

REACTIONS (1)
  - MICROCYTIC ANAEMIA [None]
